FAERS Safety Report 4936516-9 (Version None)
Quarter: 2006Q1

REPORT INFORMATION
  Report Type: 
  Country: None (occurrence: None)
  Receive Date: 20060307
  Receipt Date: 20050112
  Transmission Date: 20060701
  Serious: Yes (Hospitalization, Disabling)
  Sender: FDA-Public Use
  Company Number: US-MERCK-0501USA02256

PATIENT
  Age: 57 Year
  Sex: Male
  Weight: 86 kg

DRUGS (3)
  1. VIOXX [Suspect]
     Indication: ARTHRITIS
     Route: 048
     Dates: start: 19991001, end: 20040924
  2. LOTREL [Concomitant]
     Route: 065
  3. SYNTHROID [Concomitant]
     Route: 065

REACTIONS (17)
  - ACUTE MYOCARDIAL INFARCTION [None]
  - ADVERSE EVENT [None]
  - ANEURYSM [None]
  - ARTHROPATHY [None]
  - CORONARY ARTERY DISEASE [None]
  - CORONARY ARTERY OCCLUSION [None]
  - EXOSTOSIS [None]
  - FEMORAL ARTERY OCCLUSION [None]
  - HYPERLIPIDAEMIA [None]
  - HYPERTENSION [None]
  - LEUKOCYTOSIS [None]
  - PALPITATIONS [None]
  - POSTOPERATIVE ILEUS [None]
  - PROCEDURAL HYPOTENSION [None]
  - PROSTATE CANCER [None]
  - PROTEIN TOTAL INCREASED [None]
  - STENT OCCLUSION [None]
